FAERS Safety Report 13412512 (Version 2)
Quarter: 2017Q4

REPORT INFORMATION
  Report Type: Spontaneous
  Country: US (occurrence: US)
  Receive Date: 20170406
  Receipt Date: 20171123
  Transmission Date: 20180320
  Serious: No
  Sender: FDA-Public Use
  Company Number: US-JNJFOC-20170309205

PATIENT
  Sex: Male

DRUGS (2)
  1. RISPERIDONE. [Suspect]
     Active Substance: RISPERIDONE
     Indication: AUTISM SPECTRUM DISORDER
     Dosage: VARYING DOSES OF 02 AND 03 MG
     Route: 065
     Dates: start: 20130108, end: 20130228
  2. RISPERDAL [Suspect]
     Active Substance: RISPERIDONE
     Indication: AUTISM SPECTRUM DISORDER
     Dosage: 02 MG AND UNSPECIFIED DOSE
     Route: 048
     Dates: start: 20000601, end: 20130228

REACTIONS (2)
  - Emotional disorder [Unknown]
  - Gynaecomastia [Unknown]
